FAERS Safety Report 25085157 (Version 1)
Quarter: 2025Q1

REPORT INFORMATION
  Report Type: Spontaneous
  Country: US (occurrence: US)
  Receive Date: 20250317
  Receipt Date: 20250317
  Transmission Date: 20250409
  Serious: No
  Sender: BAYER HEALTHCARE LLC
  Company Number: US-BAYER-2025A034620

PATIENT
  Age: 58 Year
  Sex: Male
  Weight: 73.469 kg

DRUGS (11)
  1. ALEVE [Suspect]
     Active Substance: NAPROXEN SODIUM
     Indication: Headache
  2. TREPROSTINIL SODIUM [Suspect]
     Active Substance: TREPROSTINIL SODIUM
     Dates: start: 202501
  3. LECITHIN\POLOXAMER 407 [Suspect]
     Active Substance: LECITHIN\POLOXAMER 407
  4. JARDIANCE [Suspect]
     Active Substance: EMPAGLIFLOZIN
  5. KETAMINE HYDROCHLORIDE [Suspect]
     Active Substance: KETAMINE HYDROCHLORIDE
  6. TYLENOL [Suspect]
     Active Substance: ACETAMINOPHEN
     Indication: Headache
  7. NORCO [Suspect]
     Active Substance: ACETAMINOPHEN\HYDROCODONE BITARTRATE
     Indication: Headache
  8. LECITHIN [Concomitant]
     Active Substance: LECITHIN
  9. LEXAPRO [Concomitant]
     Active Substance: ESCITALOPRAM OXALATE
  10. CLONIDINE [Concomitant]
     Active Substance: CLONIDINE
  11. KETOPROFEN [Concomitant]
     Active Substance: KETOPROFEN

REACTIONS (10)
  - Headache [None]
  - Pain in extremity [None]
  - Anxiety [None]
  - Infusion site pain [None]
  - Therapy non-responder [None]
  - Back pain [None]
  - Therapy partial responder [None]
  - Nausea [None]
  - Fatigue [None]
  - Infusion site pruritus [None]

NARRATIVE: CASE EVENT DATE: 20250101
